FAERS Safety Report 25757575 (Version 4)
Quarter: 2025Q3

REPORT INFORMATION
  Report Type: Spontaneous
  Country: EU (occurrence: EU)
  Receive Date: 20250903
  Receipt Date: 20250926
  Transmission Date: 20251021
  Serious: Yes (Other)
  Sender: PFIZER
  Company Number: EU-PFM-2025-04068

PATIENT
  Age: 79 Year
  Sex: Female
  Weight: 52 kg

DRUGS (14)
  1. BRAFTOVI [Suspect]
     Active Substance: ENCORAFENIB
     Indication: Metastatic malignant melanoma
     Dosage: 6 DF PER DAY
     Route: 048
     Dates: start: 20231120
  2. BRAFTOVI [Suspect]
     Active Substance: ENCORAFENIB
     Dosage: 4 DF PER DAY
     Route: 048
     Dates: start: 20231126, end: 20240212
  3. BRAFTOVI [Suspect]
     Active Substance: ENCORAFENIB
     Dosage: 3 DF PER DAY
     Route: 048
     Dates: start: 20240220
  4. BRAFTOVI [Suspect]
     Active Substance: ENCORAFENIB
     Dosage: 4 DF PER DAY (200 MG)
     Dates: start: 20240424
  5. MEKTOVI [Suspect]
     Active Substance: BINIMETINIB
     Indication: Metastatic malignant melanoma
     Dosage: 3 DF, BID (2/DAY) MORNING AND EVENING
     Route: 048
     Dates: start: 20231120
  6. MEKTOVI [Suspect]
     Active Substance: BINIMETINIB
     Dosage: 2 DF, BID (2/DAY) MORNING AND EVENING
     Route: 048
     Dates: start: 20231126, end: 20240212
  7. MEKTOVI [Suspect]
     Active Substance: BINIMETINIB
     Dosage: 2 DF, BID (2/DAY) MORNING AND EVENING
     Route: 048
     Dates: start: 20240220
  8. MEKTOVI [Suspect]
     Active Substance: BINIMETINIB
     Dosage: 2 DF, BID (2/DAY) MORNING AND EVENING
     Route: 048
     Dates: start: 20240424
  9. MEKTOVI [Suspect]
     Active Substance: BINIMETINIB
     Dosage: 4 DF PER DAY (200 MG)
     Route: 048
     Dates: start: 20240424
  10. RAS [Concomitant]
  11. BISOPROLOL [Concomitant]
     Active Substance: BISOPROLOL
     Dosage: 1.25 MG, DAILY
  12. LEVOTHYROXINE [Concomitant]
     Active Substance: LEVOTHYROXINE
     Dosage: 200 UG, DAILY FOR 2 DAYS
  13. PREDNISONE [Concomitant]
     Active Substance: PREDNISONE
     Indication: Intracranial pressure increased
     Dosage: 30 MG, DAILY
     Route: 065
     Dates: start: 20250314
  14. ASPIRIN\CLOPIDOGREL [Concomitant]
     Active Substance: ASPIRIN\CLOPIDOGREL
     Dosage: UNK, 1X/DAY
     Route: 065

REACTIONS (7)
  - Cholestasis [Not Recovered/Not Resolved]
  - Serous retinal detachment [Recovered/Resolved]
  - Arthralgia [Recovering/Resolving]
  - Diarrhoea [Recovering/Resolving]
  - Constipation [Recovering/Resolving]
  - Abdominal pain [Recovering/Resolving]
  - Off label use [Unknown]

NARRATIVE: CASE EVENT DATE: 20231220
